FAERS Safety Report 8949872 (Version 1)
Quarter: 2012Q4

REPORT INFORMATION
  Report Type: 
  Country: AU (occurrence: AU)
  Receive Date: 20121206
  Receipt Date: 20121206
  Transmission Date: 20130627
  Serious: Yes (Death)
  Sender: FDA-Public Use
  Company Number: AU-B.I. PHARMACEUTICALS,INC./RIDGEFIELD-2012-AU-01943AU

PATIENT
  Age: 82 Year
  Sex: Female

DRUGS (8)
  1. PRADAXA [Suspect]
     Indication: CEREBROVASCULAR ACCIDENT PROPHYLAXIS
     Dosage: 220 mg
     Dates: start: 20110822
  2. PRADAXA [Suspect]
     Indication: ATRIAL FIBRILLATION
  3. CANDESARTAN [Concomitant]
  4. BICOR [Concomitant]
  5. CRESTOR [Concomitant]
  6. LANOXIN-PG [Concomitant]
  7. FRUSEMIDE [Concomitant]
  8. PARIET [Concomitant]

REACTIONS (2)
  - Cardiac failure [Fatal]
  - Pneumonia [Fatal]
